FAERS Safety Report 20483653 (Version 3)
Quarter: 2022Q1

REPORT INFORMATION
  Report Type: Spontaneous
  Country: US (occurrence: None)
  Receive Date: 20220217
  Receipt Date: 20220328
  Transmission Date: 20220423
  Serious: No
  Sender: FDA-Public Use
  Company Number: 2022A069382

PATIENT
  Sex: Male
  Weight: 83.5 kg

DRUGS (1)
  1. SYMBICORT [Suspect]
     Active Substance: BUDESONIDE\FORMOTEROL FUMARATE DIHYDRATE
     Indication: Chronic obstructive pulmonary disease
     Dosage: 160/4.5 MCG, 120 INHALATIONS, 2 INHALATIONS TWICE A DAY
     Route: 055
     Dates: start: 2022

REACTIONS (5)
  - Cough [Unknown]
  - Product dose omission issue [Unknown]
  - Device use issue [Unknown]
  - Device delivery system issue [Unknown]
  - Device malfunction [Unknown]
